FAERS Safety Report 10196885 (Version 2)
Quarter: 2014Q2

REPORT INFORMATION
  Report Type: Spontaneous
  Country: GB (occurrence: GB)
  Receive Date: 20140527
  Receipt Date: 20140530
  Transmission Date: 20141212
  Serious: Yes (Other)
  Sender: FDA-Public Use
  Company Number: GB-ASTRAZENECA-2014SE34669

PATIENT
  Age: 69 Year
  Sex: Male
  Weight: 99.6 kg

DRUGS (13)
  1. OMEPRAZOLE [Suspect]
     Indication: DYSPEPSIA
     Route: 048
     Dates: end: 20140428
  2. OMEPRAZOLE [Suspect]
     Indication: GASTROOESOPHAGEAL REFLUX DISEASE
     Route: 048
     Dates: end: 20140428
  3. ATORVASTATIN [Concomitant]
  4. CALCIUM FOLINATE [Concomitant]
  5. DEXAMETHASONE [Concomitant]
  6. DIFFLAM [Concomitant]
  7. FLUOROURACIL [Concomitant]
  8. LOPERAMIDE [Concomitant]
  9. METOCLOPRAMIDE [Concomitant]
  10. NYSTATIN [Concomitant]
  11. ONDANSETRON [Concomitant]
  12. OXALIPLATIN [Concomitant]
  13. PROPRANOLOL [Concomitant]

REACTIONS (4)
  - Muscle disorder [Unknown]
  - Hypomagnesaemia [Recovered/Resolved]
  - Nausea [Unknown]
  - Paraesthesia [Unknown]
